FAERS Safety Report 4367301-7 (Version None)
Quarter: 2004Q2

REPORT INFORMATION
  Report Type: 
  Country: None (occurrence: None)
  Receive Date: 20040601
  Receipt Date: 20040423
  Transmission Date: 20050107
  Serious: Yes (Other)
  Sender: FDA-Public Use
  Company Number: PHBS2004TN05772

PATIENT
  Sex: Female

DRUGS (1)
  1. CARBAMAZEPINE [Suspect]
     Indication: EPILEPSY
     Dosage: 600 MG/DAY
     Route: 065
     Dates: start: 19940101, end: 19990101

REACTIONS (10)
  - ASTHENIA [None]
  - DYSPHAGIA [None]
  - DYSPHONIA [None]
  - EYELID PTOSIS [None]
  - MUSCULAR WEAKNESS [None]
  - MYASTHENIC SYNDROME [None]
  - PARESIS [None]
  - THYMECTOMY [None]
  - THYMOMA [None]
  - THYMUS DISORDER [None]
